FAERS Safety Report 6080347-6 (Version None)
Quarter: 2009Q1

REPORT INFORMATION
  Report Type: 
  Country: None (occurrence: None)
  Receive Date: 20090217
  Receipt Date: 20090205
  Transmission Date: 20090719
  Serious: Yes (Other)
  Sender: FDA-Public Use
  Company Number: US-AMGEN-US332268

PATIENT
  Sex: Female
  Weight: 49.9 kg

DRUGS (9)
  1. NPLATE [Suspect]
     Indication: IDIOPATHIC THROMBOCYTOPENIC PURPURA
     Route: 065
     Dates: start: 20090123
  2. URSODIOL [Concomitant]
     Route: 065
  3. THYROID TAB [Concomitant]
     Route: 065
  4. SPIRONOLACTONE [Concomitant]
     Route: 065
  5. NADOLOL [Concomitant]
     Route: 065
  6. FUROSEMIDE [Concomitant]
     Route: 065
  7. ACYCLOVIR [Concomitant]
     Route: 065
  8. NOVOLIN R [Concomitant]
     Route: 065
  9. NOVOLIN L [Concomitant]
     Route: 065

REACTIONS (6)
  - AMNESIA [None]
  - ASTHENIA [None]
  - BLOOD GLUCOSE INCREASED [None]
  - CONDITION AGGRAVATED [None]
  - FATIGUE [None]
  - PRURITUS GENERALISED [None]
